FAERS Safety Report 13084571 (Version 1)
Quarter: 2017Q1

REPORT INFORMATION
  Report Type: Spontaneous
  Country: US (occurrence: US)
  Receive Date: 20170104
  Receipt Date: 20170104
  Transmission Date: 20170428
  Serious: Yes (Other)
  Sender: FDA-Public Use
  Company Number: None

PATIENT
  Age: 94 Year
  Sex: Female
  Weight: 59.88 kg

DRUGS (8)
  1. CELECOXIB 200MG CAP ACT GENERIC FOR CELEBREX 200MG CAP ACTAVIS [Suspect]
     Active Substance: CELECOXIB
     Indication: ARTHRITIS
     Route: 048
     Dates: start: 20161111, end: 20161114
  2. CENTRUM SILVER VITAMIN [Concomitant]
  3. CALCIUM [Concomitant]
     Active Substance: CALCIUM
  4. ASPIRIN. [Concomitant]
     Active Substance: ASPIRIN
  5. AZITHROMYCIN ANHYDROUS. [Concomitant]
     Active Substance: AZITHROMYCIN ANHYDROUS
  6. CELEBREX [Concomitant]
     Active Substance: CELECOXIB
  7. PREMARIN [Concomitant]
     Active Substance: ESTROGENS, CONJUGATED
  8. ACETAMINOPHEN. [Concomitant]
     Active Substance: ACETAMINOPHEN

REACTIONS (6)
  - Eye pain [None]
  - Oropharyngeal pain [None]
  - Groin pain [None]
  - Pruritus [None]
  - Product substitution issue [None]
  - Haemoptysis [None]

NARRATIVE: CASE EVENT DATE: 20161111
